FAERS Safety Report 22400909 (Version 1)
Quarter: 2023Q2

REPORT INFORMATION
  Report Type: Spontaneous
  Country: US (occurrence: None)
  Receive Date: 20230601
  Receipt Date: 20230601
  Transmission Date: 20230721
  Serious: Yes (Disabling, Other)
  Sender: FDA-Public Use
  Company Number: None

PATIENT
  Age: 71 Year
  Sex: Male
  Weight: 102.06 kg

DRUGS (2)
  1. REPATHA [Suspect]
     Active Substance: EVOLOCUMAB
     Indication: Blood cholesterol increased
     Dosage: FREQUENCY : EVERY OTHER WEEK;?
     Dates: start: 20221218, end: 20221218
  2. IPROTROPIUM BRMIDE ALBTEROL NEBULIZER [Concomitant]

REACTIONS (6)
  - Dyspnoea [None]
  - Back pain [None]
  - Pain in extremity [None]
  - Dizziness [None]
  - Vision blurred [None]
  - Influenza like illness [None]

NARRATIVE: CASE EVENT DATE: 20221218
